FAERS Safety Report 9306878 (Version 2)
Quarter: 2013Q3

REPORT INFORMATION
  Report Type: Spontaneous
  Country: US (occurrence: None)
  Receive Date: 20130320
  Receipt Date: 20130815
  Transmission Date: 20140515
  Serious: Yes (Hospitalization, Other)
  Sender: FDA-Public Use
  Company Number: ADR-2013-00008

PATIENT
  Sex: Male

DRUGS (2)
  1. BACLOFEN [Suspect]
     Indication: MUSCLE SPASTICITY
     Dosage: 179.34 MCG/DAY
  2. ORAL DANTRIUM [Concomitant]

REACTIONS (15)
  - Convulsion [None]
  - Withdrawal syndrome [None]
  - Pyrexia [None]
  - Tremor [None]
  - Clonus [None]
  - Discomfort [None]
  - Body temperature increased [None]
  - No therapeutic response [None]
  - Muscle tightness [None]
  - Device malfunction [None]
  - Drug withdrawal syndrome [None]
  - Pyrexia [None]
  - Convulsion [None]
  - Tremor [None]
  - Aqueductal stenosis [None]
